FAERS Safety Report 4660987-9 (Version None)
Quarter: 2005Q2

REPORT INFORMATION
  Report Type: 
  Country: None (occurrence: None)
  Receive Date: 20050511
  Receipt Date: 20050502
  Transmission Date: 20051028
  Serious: Yes (Other)
  Sender: FDA-Public Use
  Company Number: 2005069205

PATIENT
  Age: 42 Year
  Sex: Female
  Weight: 276.2406 kg

DRUGS (4)
  1. CELEBREX [Suspect]
     Indication: CARPAL TUNNEL SYNDROME
     Dosage: 100 MG) , ORAL
     Route: 048
     Dates: start: 20000201
  2. BEXTRA [Suspect]
     Indication: OSTEOARTHRITIS
     Dosage: 10 MG (10 MG, 1 IN 1 D), ORAL
     Route: 048
     Dates: start: 20030501
  3. ZOLOFT [Concomitant]
  4. THOMAPYRIN N [Concomitant]

REACTIONS (4)
  - DRUG INEFFECTIVE [None]
  - MUSCULOSKELETAL STIFFNESS [None]
  - OSTEOARTHRITIS [None]
  - SOMNOLENCE [None]
